FAERS Safety Report 9495392 (Version 1)
Quarter: 2013Q3

REPORT INFORMATION
  Report Type: Spontaneous
  Country: DE (occurrence: DE)
  Receive Date: 20130903
  Receipt Date: 20130903
  Transmission Date: 20140515
  Serious: Yes (Other)
  Sender: FDA-Public Use
  Company Number: DE-GLAXOSMITHKLINE-D0080884A

PATIENT
  Sex: Female

DRUGS (5)
  1. REQUIP-MODUTAB [Suspect]
     Route: 048
  2. STALEVO [Suspect]
     Dosage: 293.75MG PER DAY
     Route: 048
  3. PK-MERZ [Suspect]
     Dosage: 100MG PER DAY
     Route: 065
  4. AZILECT [Suspect]
     Dosage: 1MG PER DAY
     Route: 048
  5. LEVODOPA [Suspect]
     Route: 048

REACTIONS (1)
  - Parkinson^s disease [Unknown]
